FAERS Safety Report 22332268 (Version 3)
Quarter: 2023Q2

REPORT INFORMATION
  Report Type: Spontaneous
  Country: IN (occurrence: IN)
  Receive Date: 20230517
  Receipt Date: 20230525
  Transmission Date: 20230721
  Serious: Yes (Other)
  Sender: FDA-Public Use
  Company Number: IN-PFIZER INC-PV202300083125

PATIENT
  Age: 77 Year
  Sex: Female

DRUGS (1)
  1. ENBREL [Suspect]
     Active Substance: ETANERCEPT
     Dosage: 50 MG

REACTIONS (5)
  - Suspected counterfeit product [Unknown]
  - Injection site infection [Unknown]
  - Injection site swelling [Unknown]
  - Injection site erythema [Unknown]
  - Injection site pruritus [Unknown]
